FAERS Safety Report 5111189-3 (Version None)
Quarter: 2006Q3

REPORT INFORMATION
  Report Type: 
  Country: None (occurrence: None)
  Receive Date: 20060731
  Receipt Date: 20060610
  Transmission Date: 20061208
  Serious: No
  Sender: FDA-Public Use
  Company Number: 2006PV015397

PATIENT
  Age: 75 Year
  Sex: Male

DRUGS (2)
  1. BYETTA [Suspect]
     Indication: DIABETES MELLITUS NON-INSULIN-DEPENDENT
     Dosage: 5 MCG BID SC
     Route: 058
     Dates: start: 20060501
  2. GLIPIZIDE [Concomitant]

REACTIONS (7)
  - ASTHENIA [None]
  - BACTERIAL INFECTION [None]
  - COUGH [None]
  - DECREASED APPETITE [None]
  - NAUSEA [None]
  - PARANASAL SINUS HYPERSECRETION [None]
  - VOMITING [None]
